FAERS Safety Report 6993007-1 (Version None)
Quarter: 2010Q3

REPORT INFORMATION
  Report Type: 
  Country: None (occurrence: None)
  Receive Date: 20100917
  Receipt Date: 20100913
  Transmission Date: 20110219
  Serious: Yes (Other)
  Sender: FDA-Public Use
  Company Number: GB-BRISTOL-MYERS SQUIBB COMPANY-15286461

PATIENT
  Sex: Female

DRUGS (1)
  1. SUSTIVA [Suspect]
     Indication: HIV INFECTION

REACTIONS (3)
  - MUSCLE RUPTURE [None]
  - PREGNANCY [None]
  - RHABDOMYOLYSIS [None]
